FAERS Safety Report 8718332 (Version 3)
Quarter: 2013Q1

REPORT INFORMATION
  Report Type: Spontaneous
  Country: IT (occurrence: None)
  Receive Date: 20120726
  Receipt Date: 20130219
  Transmission Date: 20140127
  Serious: Yes (Death)
  Sender: FDA-Public Use
  Company Number: GER/ITL/12/0025062

PATIENT
  Age: 64 Year
  Sex: Male

DRUGS (17)
  1. CLOPIDOGREL [Suspect]
     Indication: ELECTROCARDIOGRAM ST SEGMENT ELEVATION
     Dosage: 75 MG, 1 IN 1 D, ORAL
     Route: 048
     Dates: start: 20120602, end: 20120708
  2. LEVOTHYROXINE SODIUM [Concomitant]
  3. METFORMIN HYDROCHLORIDE [Concomitant]
  4. KANRENOL (POTASSIUM CANRENOATE) [Concomitant]
  5. FUROSEMIDE (FUROSEMIDE) [Concomitant]
  6. ACETYLSALICYLIC ACID (ACETYLSALICYLIC ACID) [Concomitant]
  7. CIPROFLOXACIN [Concomitant]
  8. RAMIPRIL [Concomitant]
  9. METOPROLOL TARTRATE [Concomitant]
  10. SIMVASTATIN [Concomitant]
  11. LANSOPRAZOLE (LANSOPRAZOLE) [Concomitant]
  12. PIPERACILLIN AND TAZOBACTAM [Concomitant]
  13. CARDIOSAPIRIN (ACETYLSALICYLIC ACID) [Concomitant]
  14. ALLOPURINOL [Concomitant]
  15. ATORVASTATIN CALCIUM [Concomitant]
  16. BISOPROLOL FUMARATE [Concomitant]
  17. LANSOPRAZOLE [Concomitant]

REACTIONS (7)
  - Cardiogenic shock [None]
  - Acute coronary syndrome [None]
  - Acute pulmonary oedema [None]
  - Cardio-respiratory arrest [None]
  - Thrombosis in device [None]
  - Mitral valve incompetence [None]
  - Mitral valve incompetence [None]
